FAERS Safety Report 11073414 (Version 1)
Quarter: 2015Q2

REPORT INFORMATION
  Report Type: Spontaneous
  Country: FR (occurrence: FR)
  Receive Date: 20150428
  Receipt Date: 20150428
  Transmission Date: 20150821
  Serious: Yes (Death, Other)
  Sender: FDA-Public Use
  Company Number: FR-BAXTER-2015BAX021516

PATIENT
  Age: 63 Year
  Sex: Male

DRUGS (5)
  1. POSACONAZOL [Suspect]
     Active Substance: POSACONAZOLE
     Indication: FUNGAL INFECTION
     Route: 065
  2. POSACONAZOL [Suspect]
     Active Substance: POSACONAZOLE
     Route: 045
  3. FLUCONAZOLE REDIBAG 2 MG/ML, SOLUTION POUR PERFUSION [Suspect]
     Active Substance: FLUCONAZOLE
     Indication: PROPHYLAXIS
     Route: 042
  4. CASPOFUNGIN [Suspect]
     Active Substance: CASPOFUNGIN
     Indication: SYSTEMIC INFLAMMATORY RESPONSE SYNDROME
     Route: 065
  5. AMPHOTERICIN B. [Suspect]
     Active Substance: AMPHOTERICIN B
     Indication: FUNGAL INFECTION
     Route: 065

REACTIONS (8)
  - Fungal infection [Fatal]
  - Portal hypertensive gastropathy [Unknown]
  - Shock haemorrhagic [Fatal]
  - Systemic inflammatory response syndrome [Unknown]
  - Renal failure [Fatal]
  - Clostridium difficile colitis [Unknown]
  - Gastritis [Unknown]
  - Oesophagitis ulcerative [Unknown]
